FAERS Safety Report 12728199 (Version 1)
Quarter: 2016Q3

REPORT INFORMATION
  Report Type: Spontaneous
  Country: US (occurrence: US)
  Receive Date: 20160909
  Receipt Date: 20160909
  Transmission Date: 20161109
  Serious: No
  Sender: FDA-Public Use
  Company Number: US-BECTON DICKINSON-2016BDN00063

PATIENT
  Age: 28 Year
  Sex: Female
  Weight: 61.22 kg

DRUGS (1)
  1. CHLORAPREP WITH TINT [Suspect]
     Active Substance: CHLORHEXIDINE GLUCONATE\ISOPROPYL ALCOHOL
     Indication: INFECTION PROPHYLAXIS
     Dosage: UNK, ONCE
     Route: 065
     Dates: start: 20160412, end: 20160412

REACTIONS (1)
  - Application site dermatitis [Recovered/Resolved]

NARRATIVE: CASE EVENT DATE: 201604
